FAERS Safety Report 10711120 (Version 1)
Quarter: 2015Q1

REPORT INFORMATION
  Report Type: Spontaneous
  Country: US (occurrence: US)
  Receive Date: 20150114
  Receipt Date: 20150114
  Transmission Date: 20150721
  Serious: Yes (Death)
  Sender: FDA-Public Use
  Company Number: US-PFIZER INC-2015008178

PATIENT
  Age: 23 Year
  Sex: Male

DRUGS (5)
  1. DIPHENHYDRAMINE [Suspect]
     Active Substance: DIPHENHYDRAMINE
     Route: 051
  2. HYDROMORPHONE [Suspect]
     Active Substance: HYDROMORPHONE
     Route: 051
  3. FENTANYL. [Suspect]
     Active Substance: FENTANYL
     Route: 051
  4. FLUCONAZOLE. [Suspect]
     Active Substance: FLUCONAZOLE
     Route: 051
  5. MORPHINE SULFATE. [Suspect]
     Active Substance: MORPHINE SULFATE
     Route: 051

REACTIONS (1)
  - Completed suicide [Fatal]

NARRATIVE: CASE EVENT DATE: 2013
